FAERS Safety Report 17168732 (Version 1)
Quarter: 2019Q4

REPORT INFORMATION
  Report Type: Spontaneous
  Country: US (occurrence: US)
  Receive Date: 20191217
  Receipt Date: 20191217
  Transmission Date: 20200122
  Serious: Yes (Hospitalization)
  Sender: FDA-Public Use
  Company Number: None

PATIENT
  Age: 71 Year
  Sex: Male

DRUGS (8)
  1. POSACONAZOLE [Suspect]
     Active Substance: POSACONAZOLE
     Indication: LUNG TRANSPLANT
     Route: 048
     Dates: start: 20191017
  2. METOPROLOL. [Concomitant]
     Active Substance: METOPROLOL
  3. PREVYMIS [Concomitant]
     Active Substance: LETERMOVIR
  4. ZARXIO [Concomitant]
     Active Substance: FILGRASTIM-SNDZ
  5. KIONEX [Concomitant]
     Active Substance: SODIUM POLYSTYRENE SULFONATE
  6. VALGANCYCLOVIR [Concomitant]
     Active Substance: VALGANCICLOVIR
  7. NATEGLINIDE. [Concomitant]
     Active Substance: NATEGLINIDE
  8. NEUPOGEN [Concomitant]
     Active Substance: FILGRASTIM

REACTIONS (1)
  - Hospitalisation [None]

NARRATIVE: CASE EVENT DATE: 20191205
